FAERS Safety Report 5519081-7 (Version None)
Quarter: 2007Q4

REPORT INFORMATION
  Report Type: 
  Country: None (occurrence: None)
  Receive Date: 20071116
  Receipt Date: 20071109
  Transmission Date: 20080405
  Serious: Yes (Death, Hospitalization)
  Sender: FDA-Public Use
  Company Number: JP-JNJFOC-20071100839

PATIENT
  Sex: Female

DRUGS (9)
  1. CRAVIT [Suspect]
     Indication: URINARY TRACT INFECTION
     Route: 048
  2. ALFAROL [Concomitant]
     Route: 048
  3. PANTOSIN [Concomitant]
     Route: 048
  4. FAMOTIDINE [Concomitant]
     Route: 048
  5. PANALDINE [Concomitant]
     Route: 048
  6. CEREKINON [Concomitant]
     Route: 048
  7. PURUZENIDO [Concomitant]
     Route: 048
  8. NITRODERM [Concomitant]
     Route: 061
  9. BIOFERMIN R [Concomitant]
     Route: 048

REACTIONS (3)
  - ARRHYTHMIA [None]
  - RENAL FAILURE ACUTE [None]
  - TOXIC EPIDERMAL NECROLYSIS [None]
